FAERS Safety Report 7482447-2 (Version None)
Quarter: 2011Q2

REPORT INFORMATION
  Report Type: 
  Country: None (occurrence: None)
  Receive Date: 20110516
  Receipt Date: 20110510
  Transmission Date: 20111010
  Serious: Yes (Other)
  Sender: FDA-Public Use
  Company Number: ES-ABBOTT-11P-144-0724984-00

PATIENT
  Age: 30 Year
  Sex: Female

DRUGS (3)
  1. HUMIRA [Suspect]
     Indication: PSORIASIS
     Dosage: (INITIAL DOSE 80 MG)
     Dates: start: 20110215, end: 20110215
  2. CORTICOIDS [Suspect]
     Indication: PRODUCT USED FOR UNKNOWN INDICATION
     Route: 030
  3. HUMIRA [Suspect]
     Route: 058
     Dates: end: 20110421

REACTIONS (3)
  - PYREXIA [None]
  - PSORIASIS [None]
  - FURUNCLE [None]
